FAERS Safety Report 6703529-6 (Version None)
Quarter: 2010Q2

REPORT INFORMATION
  Report Type: 
  Country: None (occurrence: None)
  Receive Date: 20100428
  Receipt Date: 20100125
  Transmission Date: 20101027
  Serious: Yes (Other)
  Sender: FDA-Public Use
  Company Number: 2010SP005688

PATIENT
  Age: 36 Year
  Sex: Female

DRUGS (6)
  1. MIRTAZAPINE [Suspect]
     Indication: DEPRESSION
     Dosage: 15 MG;QD;PO
     Route: 048
     Dates: start: 20091130, end: 20091207
  2. TRAZODONE HCL [Suspect]
     Indication: DRUG USE FOR UNKNOWN INDICATION
  3. FLUVOXAMINE MALEATE [Suspect]
     Indication: DEPRESSION
     Dosage: 200 MG;QD;PO
     Route: 048
  4. PEROSPIRONE HYDROCHLORIDE HYDRATE (PEROSPIRONE HYDROCHLORIDE) [Suspect]
     Indication: DEPRESSION
     Dosage: 8 MG;QD;PO
     Route: 048
     Dates: end: 20091217
  5. DIAZEPAM [Suspect]
     Indication: DEPRESSION
     Dosage: 4 MG;QD;PO
     Route: 048
  6. FLUNITRAZEPAM [Concomitant]

REACTIONS (7)
  - CONDITION AGGRAVATED [None]
  - INJURY [None]
  - MULTIPLE DRUG OVERDOSE [None]
  - MULTIPLE FRACTURES [None]
  - SELF INJURIOUS BEHAVIOUR [None]
  - SUICIDAL IDEATION [None]
  - SUICIDE ATTEMPT [None]
